FAERS Safety Report 5113050-7 (Version None)
Quarter: 2006Q3

REPORT INFORMATION
  Report Type: 
  Country: None (occurrence: None)
  Receive Date: 20060922
  Receipt Date: 20060912
  Transmission Date: 20061208
  Serious: Yes (Other)
  Sender: FDA-Public Use
  Company Number: US-BOEHRINGER INGELHEIM GMBH, GERMANY-2006-DE-04909GD

PATIENT
  Age: 4 Year
  Sex: Male

DRUGS (8)
  1. BUDESONIDE [Suspect]
     Indication: ASTHMA
     Route: 055
  2. ALBUTEROL SPIROS [Suspect]
     Indication: ASTHMA
     Route: 055
  3. IPRATROPIUM BROMIDE [Suspect]
     Indication: ASTHMA
     Route: 055
  4. DEXAMETHASONE TAB [Suspect]
     Indication: ASTHMA
     Route: 042
  5. HELIOX [Suspect]
     Indication: ASTHMA
     Route: 055
  6. MAGNESIUM SULFATE [Suspect]
     Indication: ASTHMA
  7. KETAMINE HCL [Suspect]
     Indication: ASTHMA
     Dosage: 2 MG/KG OVER 2 MIN FOLLOWED BY A CONTINUOUS INFUSION OF 2 MG/KG/H - 3 MG/KG/H
     Route: 042
  8. NORMAL SALINE [Concomitant]
     Dosage: 20 ML/KG
     Route: 042

REACTIONS (7)
  - ASTHMA [None]
  - CONFUSIONAL STATE [None]
  - DRUG INEFFECTIVE [None]
  - HEART RATE INCREASED [None]
  - NYSTAGMUS [None]
  - OXYGEN SATURATION DECREASED [None]
  - RESPIRATORY RATE INCREASED [None]
